FAERS Safety Report 8616764-7 (Version None)
Quarter: 2012Q3

REPORT INFORMATION
  Report Type: 
  Country: None (occurrence: None)
  Receive Date: 20120823
  Receipt Date: 20120810
  Transmission Date: 20120928
  Serious: Yes (Other)
  Sender: FDA-Public Use
  Company Number: JP-VERTEX PHARMACEUTICAL INC.-AE-2012-005203

PATIENT
  Age: 69 Year
  Sex: Male

DRUGS (6)
  1. RIBAVIRIN [Concomitant]
     Indication: HEPATITIS C
     Route: 048
     Dates: start: 20120214, end: 20120419
  2. VX-950 [Suspect]
     Dosage: 500 UNK, UNK
     Route: 048
     Dates: start: 20120503, end: 20120514
  3. RIBAVIRIN [Concomitant]
     Route: 048
     Dates: start: 20120503
  4. PEGINTERFERON ALFA-2B [Concomitant]
     Indication: HEPATITIS C
     Route: 051
     Dates: start: 20120214
  5. VX-950 [Suspect]
     Indication: HEPATITIS C
     Dosage: 1500 MG, UNK
     Dates: start: 20120214, end: 20120419
  6. FAMOTIDINE [Concomitant]
     Route: 048

REACTIONS (2)
  - NEUTROPHIL COUNT DECREASED [None]
  - ANAEMIA [None]
